FAERS Safety Report 23304876 (Version 1)
Quarter: 2023Q4

REPORT INFORMATION
  Report Type: Spontaneous
  Country: US (occurrence: US)
  Receive Date: 20231218
  Receipt Date: 20231218
  Transmission Date: 20240110
  Serious: No
  Sender: FDA-Public Use
  Company Number: US-HALEON-USCH2023062621

PATIENT
  Age: 45 Year

DRUGS (1)
  1. CHILDRENS ADVIL [Suspect]
     Active Substance: IBUPROFEN
     Indication: Pyrexia
     Dosage: UNK

REACTIONS (2)
  - Drug ineffective [Unknown]
  - Product use issue [Unknown]
